FAERS Safety Report 6998390-9 (Version None)
Quarter: 2010Q3

REPORT INFORMATION
  Report Type: 
  Country: None (occurrence: None)
  Receive Date: 20100920
  Receipt Date: 20100909
  Transmission Date: 20110219
  Serious: Yes (Death)
  Sender: FDA-Public Use
  Company Number: JP-SANOFI-AVENTIS-2010SA045739

PATIENT
  Age: 84 Year
  Sex: Female
  Weight: 37 kg

DRUGS (24)
  1. ELPLAT [Suspect]
     Indication: COLON CANCER
     Route: 041
     Dates: start: 20090407, end: 20090407
  2. ELPLAT [Suspect]
     Route: 041
     Dates: start: 20100727, end: 20100727
  3. CALCIUM LEVOFOLINATE [Concomitant]
     Indication: COLON CANCER
     Route: 041
     Dates: start: 20090407, end: 20090407
  4. CALCIUM LEVOFOLINATE [Concomitant]
     Route: 041
     Dates: start: 20100727, end: 20100727
  5. FLUOROURACIL [Concomitant]
     Indication: COLON CANCER
     Route: 040
     Dates: start: 20090407, end: 20090407
  6. FLUOROURACIL [Concomitant]
     Route: 041
     Dates: start: 20090407, end: 20090408
  7. FLUOROURACIL [Concomitant]
     Route: 040
     Dates: start: 20100706, end: 20100706
  8. FLUOROURACIL [Concomitant]
     Route: 041
     Dates: start: 20100706, end: 20100707
  9. FLUOROURACIL [Concomitant]
     Route: 040
     Dates: start: 20090929, end: 20090929
  10. FLUOROURACIL [Concomitant]
     Route: 041
     Dates: start: 20090929, end: 20090929
  11. AVASTIN [Concomitant]
     Indication: COLON CANCER
     Route: 042
     Dates: start: 20090407, end: 20090407
  12. AVASTIN [Concomitant]
     Route: 042
     Dates: start: 20090908, end: 20090908
  13. DECADRON [Concomitant]
     Indication: COLON CANCER
     Route: 041
     Dates: start: 20090407, end: 20090929
  14. DECADRON [Concomitant]
     Route: 041
     Dates: start: 20100706, end: 20100727
  15. SEROTONE [Concomitant]
     Indication: PREMEDICATION
     Route: 041
     Dates: start: 20090407, end: 20100727
  16. MICARDIS [Concomitant]
     Indication: HYPERTENSION
     Route: 048
  17. AZELASTINE HCL [Concomitant]
     Indication: HYPERTENSION
     Route: 048
  18. URSO 250 [Concomitant]
     Indication: HEPATIC FUNCTION ABNORMAL
     Route: 048
  19. PROTECADIN [Concomitant]
     Indication: GASTRITIS
     Route: 048
  20. PLAVIX [Concomitant]
     Indication: CEREBRAL INFARCTION
     Route: 048
  21. DIGOSIN [Concomitant]
     Indication: CARDIAC FAILURE
     Route: 041
     Dates: start: 20100729, end: 20100804
  22. VASOLAN [Concomitant]
     Indication: ARRHYTHMIA
     Route: 041
     Dates: start: 20100729, end: 20100729
  23. LASIX [Concomitant]
     Indication: RENAL FAILURE
     Route: 041
     Dates: start: 20100731, end: 20100804
  24. MEROPEN [Concomitant]
     Indication: PANCREATITIS
     Route: 041
     Dates: start: 20100802, end: 20100804

REACTIONS (3)
  - ANAPHYLACTIC SHOCK [None]
  - DISSEMINATED INTRAVASCULAR COAGULATION [None]
  - PANCREATITIS [None]
